FAERS Safety Report 4975021-0 (Version None)
Quarter: 2006Q2

REPORT INFORMATION
  Report Type: 
  Country: None (occurrence: None)
  Receive Date: 20060414
  Receipt Date: 20060414
  Transmission Date: 20061013
  Serious: Yes (Life-Threatening, Hospitalization)
  Sender: FDA-Public Use
  Company Number: None

PATIENT
  Sex: Male

DRUGS (1)
  1. FOSPHENYTOIN SODIUM [Suspect]
     Indication: CONVULSION
     Dosage: 150 MG IV Q8H
     Route: 042
     Dates: start: 20060210, end: 20060215

REACTIONS (3)
  - ANAEMIA [None]
  - BONE MARROW FAILURE [None]
  - LEUKOPENIA [None]
